FAERS Safety Report 22674574 (Version 4)
Quarter: 2024Q2

REPORT INFORMATION
  Report Type: Spontaneous
  Country: US (occurrence: US)
  Receive Date: 20230705
  Receipt Date: 20240403
  Transmission Date: 20240715
  Serious: Yes (Hospitalization)
  Sender: FDA-Public Use
  Company Number: US-PFIZER INC-202200819699

PATIENT
  Age: 21 Year
  Sex: Female

DRUGS (2)
  1. LORBRENA [Suspect]
     Active Substance: LORLATINIB
     Indication: Neuroblastoma
     Dosage: 150 MG, DAILY (ONE 100MG TAB AND TWO 25MG TABS)
     Route: 048
  2. LORBRENA [Suspect]
     Active Substance: LORLATINIB
     Indication: Adrenal gland cancer
     Dosage: 1 TABS (100 MG) ORAL DAILY
     Route: 048

REACTIONS (2)
  - Pain in extremity [Unknown]
  - Off label use [Unknown]
